FAERS Safety Report 4947597-0 (Version None)
Quarter: 2006Q1

REPORT INFORMATION
  Report Type: 
  Country: None (occurrence: None)
  Receive Date: 20060320
  Receipt Date: 20060309
  Transmission Date: 20060701
  Serious: Yes (Death)
  Sender: FDA-Public Use
  Company Number: GB-ABBOTT-06P-167-0327613-00

PATIENT
  Age: 23 Year
  Sex: Female

DRUGS (1)
  1. EPILIM TABLETS [Suspect]
     Indication: OVERDOSE

REACTIONS (3)
  - DRUG LEVEL INCREASED [None]
  - ILL-DEFINED DISORDER [None]
  - INTENTIONAL OVERDOSE [None]
